FAERS Safety Report 18360599 (Version 1)
Quarter: 2020Q4

REPORT INFORMATION
  Report Type: Spontaneous
  Country: FR (occurrence: FR)
  Receive Date: 20201008
  Receipt Date: 20201008
  Transmission Date: 20210114
  Serious: Yes (Hospitalization, Other)
  Sender: FDA-Public Use
  Company Number: FR-ACCORD-204442

PATIENT
  Age: 71 Year
  Sex: Male
  Weight: 82 kg

DRUGS (14)
  1. IRINOTECAN ACCORD [Suspect]
     Active Substance: IRINOTECAN
     Indication: DUCTAL ADENOCARCINOMA OF PANCREAS
     Dosage: DAILY
     Route: 042
     Dates: start: 20190405
  2. IRINOTECAN ACCORD [Suspect]
     Active Substance: IRINOTECAN
     Indication: DUCTAL ADENOCARCINOMA OF PANCREAS
     Dates: start: 20190507
  3. LEUCOVORIN SANOFI [Suspect]
     Active Substance: LEUCOVORIN
     Indication: DUCTAL ADENOCARCINOMA OF PANCREAS
     Route: 042
     Dates: start: 20190507
  4. FLUOROURACIL. [Suspect]
     Active Substance: FLUOROURACIL
     Indication: DUCTAL ADENOCARCINOMA OF PANCREAS
     Dates: start: 20190507
  5. LEUCOVORIN SANOFI [Suspect]
     Active Substance: LEUCOVORIN
     Indication: DUCTAL ADENOCARCINOMA OF PANCREAS
     Dates: start: 20190423
  6. FLUOROURACIL. [Suspect]
     Active Substance: FLUOROURACIL
     Indication: DUCTAL ADENOCARCINOMA OF PANCREAS
     Dosage: DAILY
     Route: 042
     Dates: start: 20190405
  7. ATROPINE. [Concomitant]
     Active Substance: ATROPINE
     Indication: PROPHYLAXIS OF NAUSEA AND VOMITING
     Dosage: 0.25 MG,1 IN 1 D
     Route: 042
     Dates: start: 20190405, end: 20190405
  8. FLUOROURACIL. [Suspect]
     Active Substance: FLUOROURACIL
     Indication: DUCTAL ADENOCARCINOMA OF PANCREAS
     Dates: start: 20190423
  9. KETOPROFEN/KETOPROFEN ARGINATE/KETOPROFEN LYSINE/KETOPROFEN SODIUM [Concomitant]
     Active Substance: KETOPROFEN
     Indication: BACK PAIN
     Dosage: 100 MG TWICE DAILY
     Route: 048
     Dates: start: 20190326
  10. ONDANSETRON [Concomitant]
     Active Substance: ONDANSETRON
     Indication: PROPHYLAXIS OF NAUSEA AND VOMITING
     Dosage: 8 MG,1 IN 1 D
     Route: 042
     Dates: start: 20190405, end: 20190405
  11. IRINOTECAN ACCORD [Suspect]
     Active Substance: IRINOTECAN
     Indication: DUCTAL ADENOCARCINOMA OF PANCREAS
     Dates: start: 20190423
  12. LEUCOVORIN SANOFI [Suspect]
     Active Substance: LEUCOVORIN
     Indication: DUCTAL ADENOCARCINOMA OF PANCREAS
     Dosage: DAILY
     Route: 042
     Dates: start: 20190405
  13. EMEND [Concomitant]
     Active Substance: APREPITANT
     Indication: PROPHYLAXIS OF NAUSEA AND VOMITING
     Dosage: 125 MG,1 IN 1 D
     Route: 042
     Dates: start: 20190405, end: 20190405
  14. MORPHINE [Concomitant]
     Active Substance: MORPHINE
     Indication: BACK PAIN
     Dosage: 1.6 MG/H CONTINOUS 4 MG BOLUS
     Route: 042
     Dates: start: 20190326, end: 20190409

REACTIONS (1)
  - General physical health deterioration [Recovered/Resolved]

NARRATIVE: CASE EVENT DATE: 20190406
